FAERS Safety Report 7300532-2 (Version None)
Quarter: 2011Q1

REPORT INFORMATION
  Report Type: 
  Country: None (occurrence: None)
  Receive Date: 20110217
  Receipt Date: 20110215
  Transmission Date: 20110831
  Serious: Yes (Death)
  Sender: FDA-Public Use
  Company Number: US-B.I. PHARMACEUTICALS,INC./RIDGEFIELD-2011-BP-03036BP

PATIENT
  Sex: Female

DRUGS (1)
  1. PRADAXA [Suspect]
     Indication: ATRIAL FIBRILLATION
     Route: 048
     Dates: start: 20101101, end: 20101101

REACTIONS (5)
  - PROTEIN TOTAL INCREASED [None]
  - HEPATIC ENZYME INCREASED [None]
  - DEATH [None]
  - CREATININE RENAL CLEARANCE [None]
  - BLOOD UREA INCREASED [None]
